FAERS Safety Report 18026571 (Version 2)
Quarter: 2021Q4

REPORT INFORMATION
  Report Type: Report from Study
  Country: DE (occurrence: None)
  Receive Date: 20200716
  Receipt Date: 20211117
  Transmission Date: 20220303
  Serious: Yes (Death)
  Sender: FDA-Public Use
  Company Number: DE-ROCHE-2641014

PATIENT
  Age: 51 Year
  Sex: Female
  Weight: 59 kg

DRUGS (1)
  1. ATEZOLIZUMAB [Suspect]
     Active Substance: ATEZOLIZUMAB
     Indication: Glioblastoma
     Dosage: DATE OF LATEST DOSE 06/DEC/2019.
     Route: 041
     Dates: start: 20190801

REACTIONS (1)
  - Disease progression [Fatal]

NARRATIVE: CASE EVENT DATE: 20211109
